FAERS Safety Report 25710228 (Version 1)
Quarter: 2025Q3

REPORT INFORMATION
  Report Type: Spontaneous
  Country: US (occurrence: US)
  Receive Date: 20250821
  Receipt Date: 20250821
  Transmission Date: 20251021
  Serious: No
  Sender: GLAXOSMITHKLINE
  Company Number: US-GSK-US2025AMR104453

PATIENT

DRUGS (3)
  1. NUCALA [Suspect]
     Active Substance: MEPOLIZUMAB
     Indication: Migraine
  2. NUCALA [Suspect]
     Active Substance: MEPOLIZUMAB
     Indication: Endometriosis
  3. NUCALA [Suspect]
     Active Substance: MEPOLIZUMAB
     Indication: Vitamin D deficiency

REACTIONS (1)
  - Off label use [Unknown]
